FAERS Safety Report 25364233 (Version 2)
Quarter: 2025Q2

REPORT INFORMATION
  Report Type: Report from Study
  Country: US (occurrence: US)
  Receive Date: 20250527
  Receipt Date: 20250618
  Transmission Date: 20250716
  Serious: Yes (Hospitalization)
  Sender: EISAI
  Company Number: US-Eisai-EC-2025-189710

PATIENT
  Age: 72 Year
  Sex: Male
  Weight: 83.4 kg

DRUGS (2)
  1. LENVIMA [Suspect]
     Active Substance: LENVATINIB
     Indication: Hepatic cancer
     Dates: start: 20250515
  2. OPDIVO [Suspect]
     Active Substance: NIVOLUMAB
     Indication: Hepatic cancer

REACTIONS (2)
  - Ammonia abnormal [Unknown]
  - Disease progression [Unknown]

NARRATIVE: CASE EVENT DATE: 20250101
